FAERS Safety Report 23297692 (Version 1)
Quarter: 2023Q4

REPORT INFORMATION
  Report Type: Spontaneous
  Country: US (occurrence: US)
  Receive Date: 20231214
  Receipt Date: 20231214
  Transmission Date: 20240109
  Serious: Yes (Other)
  Sender: FDA-Public Use
  Company Number: US-HORIZON THERAPEUTICS-HZN-2023-009201

PATIENT

DRUGS (20)
  1. PROCYSBI [Suspect]
     Active Substance: CYSTEAMINE BITARTRATE
     Indication: Cystinosis
     Dosage: 75 MG CAPSULES TWICE A DAY
     Route: 048
  2. PREDNISONE [Concomitant]
     Active Substance: PREDNISONE
  3. TACROLIMUS [Concomitant]
     Active Substance: TACROLIMUS
  4. VITAMIN D [Concomitant]
     Active Substance: VITAMIN D NOS
  5. CALCIUM [Concomitant]
     Active Substance: CALCIUM
  6. MAGNESIUM [Concomitant]
     Active Substance: MAGNESIUM
  7. FERROUS SULFATE [Concomitant]
     Active Substance: FERROUS SULFATE
  8. ATENOLOL [Concomitant]
     Active Substance: ATENOLOL
     Indication: Hypertension
  9. CYSTARAN [Concomitant]
     Active Substance: CYSTEAMINE HYDROCHLORIDE
  10. SUMATRIPTAN [Concomitant]
     Active Substance: SUMATRIPTAN
     Indication: Migraine
  11. PROBIOTICS NOS [Concomitant]
     Active Substance: PROBIOTICS NOS
     Indication: Gastrointestinal motility disorder
  12. OMEPRAZOLE [Concomitant]
     Active Substance: OMEPRAZOLE
     Indication: Dyspepsia
  13. DESVENLAFAXINE [Concomitant]
     Active Substance: DESVENLAFAXINE
     Indication: Post-traumatic stress disorder
  14. DESVENLAFAXINE [Concomitant]
     Active Substance: DESVENLAFAXINE
     Indication: Depression
  15. DESVENLAFAXINE [Concomitant]
     Active Substance: DESVENLAFAXINE
     Indication: Anxiety
  16. LORAZEPAM [Concomitant]
     Active Substance: LORAZEPAM
     Indication: Post-traumatic stress disorder
  17. LORAZEPAM [Concomitant]
     Active Substance: LORAZEPAM
     Indication: Depression
  18. LORAZEPAM [Concomitant]
     Active Substance: LORAZEPAM
     Indication: Anxiety
  19. ONDANSETRON [Concomitant]
     Active Substance: ONDANSETRON
     Indication: Nausea
  20. LEVOTHYROXINE [Concomitant]
     Active Substance: LEVOTHYROXINE
     Indication: Hypothyroidism

REACTIONS (5)
  - Type 2 diabetes mellitus [Unknown]
  - COVID-19 [Unknown]
  - Kyphosis [Unknown]
  - Post-traumatic neck syndrome [Unknown]
  - Concussion [Unknown]
